FAERS Safety Report 5805593-5 (Version None)
Quarter: 2008Q3

REPORT INFORMATION
  Report Type: 
  Country: None (occurrence: None)
  Receive Date: 20080710
  Receipt Date: 20080627
  Transmission Date: 20090109
  Serious: Yes (Hospitalization, Other)
  Sender: FDA-Public Use
  Company Number: US-ELI_LILLY_AND_COMPANY-US200803001860

PATIENT
  Age: 71 Year
  Sex: Female
  Weight: 77.551 kg

DRUGS (9)
  1. FORTEO [Suspect]
     Indication: OSTEOPOROSIS
     Dates: start: 20060701
  2. FORTEO [Suspect]
     Dosage: UNK, UNK
     Dates: start: 20080307
  3. METHOTREXATE [Concomitant]
  4. REMICADE [Concomitant]
  5. CELEBREX [Concomitant]
  6. FOLIC ACID [Concomitant]
  7. VITAMIN D [Concomitant]
  8. SKELAXIN [Concomitant]
  9. REQUIP [Concomitant]

REACTIONS (10)
  - ARTHROPATHY [None]
  - FALL [None]
  - FRACTURE [None]
  - GAIT DISTURBANCE [None]
  - HUMERUS FRACTURE [None]
  - PAIN IN EXTREMITY [None]
  - RADIAL NERVE INJURY [None]
  - RHEUMATOID ARTHRITIS [None]
  - ROTATOR CUFF SYNDROME [None]
  - SCAPULA FRACTURE [None]
